FAERS Safety Report 24172354 (Version 1)
Quarter: 2024Q3

REPORT INFORMATION
  Report Type: Report from Study
  Country: US (occurrence: US)
  Receive Date: 20240805
  Receipt Date: 20240805
  Transmission Date: 20241016
  Serious: Yes (Other)
  Sender: ABBVIE
  Company Number: US-ABBVIE-5862253

PATIENT
  Sex: Male

DRUGS (1)
  1. UBRELVY [Suspect]
     Active Substance: UBROGEPANT
     Indication: Migraine
     Dosage: TAKE ONE TABLET BY MOUTH ONE TIME IF NEEDED FOR MIGRAINE, MAY REPEAT DOSE IN TWO HOURS IF NEEDED ...
     Route: 048

REACTIONS (1)
  - Blindness [Unknown]
